FAERS Safety Report 11257923 (Version 1)
Quarter: 2015Q3

REPORT INFORMATION
  Report Type: Spontaneous
  Country: US (occurrence: US)
  Receive Date: 20150710
  Receipt Date: 20150710
  Transmission Date: 20151125
  Serious: No
  Sender: FDA-Public Use
  Company Number: US-JNJFOC-20150701758

PATIENT
  Sex: Female
  Weight: 85.73 kg

DRUGS (2)
  1. DURAGESIC [Concomitant]
     Active Substance: FENTANYL
     Indication: PAIN
     Route: 062
     Dates: start: 2010
  2. FENTANYL. [Suspect]
     Active Substance: FENTANYL
     Indication: PAIN
     Route: 065
     Dates: start: 2010

REACTIONS (4)
  - Adverse event [Unknown]
  - Product adhesion issue [Unknown]
  - Drug dose omission [Unknown]
  - Drug effect decreased [Unknown]
